FAERS Safety Report 8543459-0 (Version None)
Quarter: 2012Q3

REPORT INFORMATION
  Report Type: 
  Country: None (occurrence: None)
  Receive Date: 20120727
  Receipt Date: 20120723
  Transmission Date: 20120928
  Serious: Yes (Life-Threatening, Hospitalization, Other)
  Sender: FDA-Public Use
  Company Number: PHHY2012BR063511

PATIENT
  Sex: Female
  Weight: 71 kg

DRUGS (2)
  1. FORMOTEROL FUMARATE [Suspect]
     Indication: ASTHMA
     Dosage: 1 DF, BID (MORNING AND AT NIGHT)
  2. FORMOTEROL FUMARATE [Suspect]
     Dosage: 4 DF, BID

REACTIONS (22)
  - CARDIO-RESPIRATORY ARREST [None]
  - BURNING SENSATION [None]
  - SWELLING [None]
  - NAUSEA [None]
  - DISCOMFORT [None]
  - CHEST DISCOMFORT [None]
  - FATIGUE [None]
  - MUSCULOSKELETAL PAIN [None]
  - TREMOR [None]
  - JOINT SWELLING [None]
  - PAIN [None]
  - ASTHMA [None]
  - ARTHROPATHY [None]
  - ABDOMINAL PAIN UPPER [None]
  - HYPOPHAGIA [None]
  - DYSPNOEA [None]
  - VOMITING [None]
  - INSOMNIA [None]
  - RESPIRATORY ARREST [None]
  - CHONDROPATHY [None]
  - OSTEOARTHRITIS [None]
  - WEIGHT DECREASED [None]
